FAERS Safety Report 8764962 (Version 2)
Quarter: 2012Q4

REPORT INFORMATION
  Report Type: 
  Country: FR (occurrence: FR)
  Receive Date: 20120903
  Receipt Date: 20121003
  Transmission Date: 20130627
  Serious: Yes (Hospitalization)
  Sender: FDA-Public Use
  Company Number: FR-BRISTOL-MYERS SQUIBB COMPANY-16892069

PATIENT
  Age: 83 Year
  Sex: Female

DRUGS (11)
  1. COAPROVEL TABS 300MG/ 25MG [Suspect]
     Indication: HYPERTENSION
     Dosage: 1 DF: 1tab,long term ,film coated
     Route: 048
  2. LASILIX [Suspect]
     Indication: HYPERTENSION
     Dosage: long term
     Route: 048
  3. TAHOR [Suspect]
     Indication: HYPERCHOLESTEROLAEMIA
     Dosage: tab,long term
     Route: 048
  4. SITAGLIPTIN PHOSPHATE + METFORMIN HCL [Suspect]
     Indication: TYPE 2 DIABETES MELLITUS
     Dosage: Velmetia
     Route: 048
     Dates: start: 201201, end: 20120723
  5. PREVISCAN [Suspect]
     Indication: ATRIAL FIBRILLATION
     Dosage: 1df=0.75 units not specified
product strength is 20mg
     Route: 048
     Dates: start: 20120622
  6. AMAREL [Suspect]
     Indication: TYPE 2 DIABETES MELLITUS
     Route: 048
  7. LAROXYL [Concomitant]
  8. NEBILOX [Concomitant]
  9. SMECTA [Concomitant]
  10. METEOXANE [Concomitant]
  11. CELLUVISC [Concomitant]

REACTIONS (8)
  - Pancreatitis [Recovering/Resolving]
  - Renal tubular necrosis [Recovering/Resolving]
  - Epistaxis [Recovering/Resolving]
  - Hyperlactacidaemia [Recovering/Resolving]
  - Cholestasis [Recovering/Resolving]
  - Overdose [Recovering/Resolving]
  - Renal failure acute [Recovering/Resolving]
  - Hypoglycaemia [Recovering/Resolving]
